FAERS Safety Report 19939260 (Version 1)
Quarter: 2021Q4

REPORT INFORMATION
  Report Type: Spontaneous
  Country: US (occurrence: US)
  Receive Date: 20211011
  Receipt Date: 20211011
  Transmission Date: 20220304
  Serious: Yes (Other)
  Sender: FDA-Public Use
  Company Number: US-MLMSERVICE-20210923-3121032-1

PATIENT
  Age: 29 Year
  Sex: Male

DRUGS (2)
  1. CISPLATIN [Suspect]
     Active Substance: CISPLATIN
     Indication: Pancreatic carcinoma
     Dosage: UNKNOWN
     Route: 065
  2. ETOPOSIDE [Suspect]
     Active Substance: ETOPOSIDE
     Indication: Pancreatic carcinoma
     Dosage: UNKNOWN
     Route: 065

REACTIONS (4)
  - Drug tolerance decreased [Unknown]
  - Cachexia [Unknown]
  - Fatigue [Unknown]
  - Nausea [Unknown]
